FAERS Safety Report 10786711 (Version 4)
Quarter: 2016Q4

REPORT INFORMATION
  Report Type: Report from Study
  Country: TW (occurrence: TW)
  Receive Date: 20150211
  Receipt Date: 20161213
  Transmission Date: 20170206
  Serious: Yes (Hospitalization)
  Sender: FDA-Public Use
  Company Number: TW-MERCK-1410TWN000682

PATIENT
  Age: 45 Year
  Sex: Male
  Weight: 85.9 kg

DRUGS (27)
  1. PEMBROLIZUMAB. [Suspect]
     Active Substance: PEMBROLIZUMAB
     Indication: NON-SMALL CELL LUNG CANCER
     Dosage: 2 MG/KG, Q3W
     Route: 042
     Dates: start: 20140902, end: 20140902
  2. NINCORT [Concomitant]
     Indication: PROPHYLAXIS
     Dosage: 0.5 %, BID
     Route: 061
     Dates: start: 20140903, end: 20140919
  3. PACLITAXEL. [Suspect]
     Active Substance: PACLITAXEL
     Dosage: 200 MG/M2, Q3W
     Route: 042
     Dates: start: 20140925, end: 20140925
  4. ACTEIN [Concomitant]
     Indication: PRODUCTIVE COUGH
     Dosage: 600 MG, BID
     Route: 048
     Dates: start: 20140803, end: 20140923
  5. CODEINE [Concomitant]
     Active Substance: CODEINE
     Indication: COUGH
     Dosage: 30 MG, TID
     Route: 048
     Dates: start: 20140818, end: 20140923
  6. GASTRO-TIMELETS [Concomitant]
     Indication: PROPHYLAXIS OF NAUSEA AND VOMITING
     Dosage: 30 MG, QD
     Route: 048
     Dates: start: 20140903, end: 20140911
  7. COMFFLAM [Concomitant]
     Indication: PROPHYLAXIS
     Dosage: 7.5 %, BID, FORMULATION: BOTTLE
     Route: 061
     Dates: start: 20140924, end: 20141008
  8. HYDROCORTISONE. [Concomitant]
     Active Substance: HYDROCORTISONE
     Indication: PREMEDICATION
     Dosage: 200 MG, QD
     Route: 042
     Dates: start: 20140925, end: 20140925
  9. SODIUM CHLORIDE. [Concomitant]
     Active Substance: SODIUM CHLORIDE
     Indication: INFUSION
     Dosage: TOTAL DAILY DOSE: 530 ML
     Route: 042
     Dates: start: 20140925, end: 20140925
  10. BETAMETHASONE. [Concomitant]
     Active Substance: BETAMETHASONE
     Indication: PREMEDICATION
     Dosage: 4 MG, ONCE, FORMULATION: AMPULE
     Route: 042
     Dates: start: 20140925, end: 20140925
  11. CLEXANE (ENOXAPARIN SODIUM) [Concomitant]
     Active Substance: ENOXAPARIN SODIUM
     Indication: DEEP VEIN THROMBOSIS
     Dosage: TOTAL DAILY DOSE: 180 MG, FORMULATION: AMPULE
     Route: 058
     Dates: start: 20140824, end: 20141013
  12. DIPHENHYDRAMINE HYDROCHLORIDE. [Concomitant]
     Active Substance: DIPHENHYDRAMINE HYDROCHLORIDE
     Indication: PREMEDICATION
     Dosage: 30 MG, QD, FORMULATION: AMPULE
     Route: 042
     Dates: start: 20140925, end: 20140925
  13. DORISON (DEXAMETHASONE) [Concomitant]
     Indication: RASH
     Dosage: 4 MG, BID
     Route: 048
     Dates: start: 20140924, end: 20140929
  14. FAMOTIDINE. [Concomitant]
     Active Substance: FAMOTIDINE
     Indication: PROPHYLAXIS AGAINST GASTROINTESTINAL ULCER
     Dosage: 20 MG, QD, FORMULATION AMPULE
     Route: 042
     Dates: start: 20140902, end: 20141002
  15. GASTRO-TIMELETS [Concomitant]
     Dosage: 30 MG, QD
     Route: 048
     Dates: start: 20140924, end: 20141001
  16. NINCORT [Concomitant]
     Indication: PROPHYLAXIS
     Dosage: 1 %, QD
     Route: 061
     Dates: start: 20140924, end: 20141008
  17. INDOMETHACIN. [Concomitant]
     Active Substance: INDOMETHACIN
     Indication: NON-SMALL CELL LUNG CANCER
     Dosage: TOTAL DAILY DOSE: 1 %
     Route: 061
     Dates: start: 20140828, end: 20140919
  18. PEMBROLIZUMAB. [Suspect]
     Active Substance: PEMBROLIZUMAB
     Dosage: 2 MG/KG, Q3W
     Route: 042
     Dates: start: 20141015
  19. PACLITAXEL. [Suspect]
     Active Substance: PACLITAXEL
     Indication: NON-SMALL CELL LUNG CANCER
     Dosage: 200 MG/M2, Q3W
     Route: 042
     Dates: start: 20140902, end: 20140902
  20. BROWN MIXTURE (ANTIMONY POTASSIUM TARTRATE (+) BENZOIC ACID (+) CAMPHO [Concomitant]
     Indication: COUGH
     Dosage: TOTAL DAILY DOSE: 10 ML, PRN
     Route: 048
     Dates: start: 20140831, end: 20140923
  21. PEMBROLIZUMAB. [Suspect]
     Active Substance: PEMBROLIZUMAB
     Dosage: 2 MG/KG, Q3W
     Route: 042
     Dates: start: 20140925, end: 20140925
  22. CARBOPLATIN. [Suspect]
     Active Substance: CARBOPLATIN
     Indication: NON-SMALL CELL LUNG CANCER
     Dosage: 6 MG/ML/MIN, Q3W
     Route: 042
     Dates: start: 20140902, end: 20140902
  23. CARBOPLATIN. [Suspect]
     Active Substance: CARBOPLATIN
     Dosage: 6 MG/ML/MIN, Q3W
     Route: 042
     Dates: start: 20140925, end: 20140925
  24. METHYLPREDNISOLONE SODIUM SUCCINATE. [Suspect]
     Active Substance: METHYLPREDNISOLONE SODIUM SUCCINATE
     Indication: RASH
     Dosage: TOTAL DAILY DOSE: 80 MG
     Route: 042
     Dates: start: 20140926, end: 20140926
  25. INDOL [Concomitant]
     Active Substance: INDOMETHACIN
     Indication: STOMATITIS
     Dosage: TOTAL DAILY DOSE: 1%, PRN
     Route: 061
     Dates: start: 20140924, end: 20141008
  26. INDOL [Concomitant]
     Active Substance: INDOMETHACIN
     Indication: NONINFECTIVE GINGIVITIS
  27. KYTRIL [Concomitant]
     Active Substance: GRANISETRON HYDROCHLORIDE
     Indication: PROPHYLAXIS OF NAUSEA AND VOMITING
     Dosage: 3 MG, QD, FORMULATION: AMPULE
     Route: 042
     Dates: start: 20140925, end: 20140925

REACTIONS (1)
  - Rash [Recovered/Resolved]

NARRATIVE: CASE EVENT DATE: 20140925
